FAERS Safety Report 4430814-3 (Version None)
Quarter: 2004Q3

REPORT INFORMATION
  Report Type: 
  Country: None (occurrence: None)
  Receive Date: 20040823
  Receipt Date: 20040730
  Transmission Date: 20050211
  Serious: Yes (Life-Threatening)
  Sender: FDA-Public Use
  Company Number: US-AMGEN-US086606

PATIENT
  Age: 40 Year
  Sex: Female

DRUGS (3)
  1. NEULASTA [Suspect]
     Indication: CHEMOTHERAPY
     Dates: start: 20040611, end: 20040709
  2. CYCLOPHOSPHAMIDE [Concomitant]
     Dates: start: 20040609, end: 20040707
  3. ADRIAMYCIN PFS [Concomitant]
     Dates: start: 20040609, end: 20040707

REACTIONS (1)
  - AGRANULOCYTOSIS [None]
